FAERS Safety Report 18529497 (Version 1)
Quarter: 2020Q4

REPORT INFORMATION
  Report Type: Other
  Country: GB (occurrence: GB)
  Receive Date: 20201121
  Receipt Date: 20201121
  Transmission Date: 20210114
  Serious: No
  Sender: FDA-Public Use
  Company Number: GB-LUPIN PHARMACEUTICALS INC.-2020-08760

PATIENT
  Age: 19 Year
  Sex: Female
  Weight: 56.24 kg

DRUGS (1)
  1. SERTRALINE [Suspect]
     Active Substance: SERTRALINE HYDROCHLORIDE
     Indication: ANXIETY
     Dosage: 200 MILLIGRAM, UNK
     Route: 048
     Dates: start: 20171120

REACTIONS (2)
  - Tic [Not Recovered/Not Resolved]
  - Vision blurred [Not Recovered/Not Resolved]
